FAERS Safety Report 5752045-7 (Version None)
Quarter: 2008Q2

REPORT INFORMATION
  Report Type: 
  Country: None (occurrence: None)
  Receive Date: 20080527
  Receipt Date: 20080508
  Transmission Date: 20081010
  Serious: Yes (Other)
  Sender: FDA-Public Use
  Company Number: 2008AL004230

PATIENT
  Sex: Female

DRUGS (1)
  1. DIGOXIN [Suspect]
     Dosage: 0.25 MG

REACTIONS (4)
  - AORTIC SURGERY [None]
  - HEART RATE ABNORMAL [None]
  - NAUSEA [None]
  - VOMITING [None]
